FAERS Safety Report 12204828 (Version 5)
Quarter: 2017Q3

REPORT INFORMATION
  Report Type: Spontaneous
  Country: US (occurrence: US)
  Receive Date: 20160323
  Receipt Date: 20170720
  Transmission Date: 20171127
  Serious: Yes (Hospitalization, Other)
  Sender: FDA-Public Use
  Company Number: US-PFIZER INC-2016128096

PATIENT
  Age: 10 Month
  Sex: Male
  Weight: 10 kg

DRUGS (7)
  1. GENOTROPIN MQ [Suspect]
     Active Substance: SOMATROPIN
     Indication: GROWTH HORMONE DEFICIENCY
     Dosage: 0.4 MG, DAILY
     Route: 058
     Dates: start: 20160318
  2. L-CARNITINE /00878601/ [Concomitant]
     Active Substance: LEVOCARNITINE
     Dosage: UNK
  3. GENOTROPIN MQ [Suspect]
     Active Substance: SOMATROPIN
     Indication: BODY HEIGHT BELOW NORMAL
     Dosage: 0.4 MG, DAILY [7 DAYS PER WEEK]
     Route: 058
     Dates: start: 201604
  4. ZANTAC [Concomitant]
     Active Substance: RANITIDINE HYDROCHLORIDE
     Dosage: UNK
  5. GENOTROPIN MQ [Suspect]
     Active Substance: SOMATROPIN
     Indication: PRADER-WILLI SYNDROME
  6. GENOTROPIN MQ [Suspect]
     Active Substance: SOMATROPIN
     Indication: CONGENITAL ANOMALY
  7. RANITIDINE. [Concomitant]
     Active Substance: RANITIDINE
     Dosage: UNK

REACTIONS (7)
  - Respiratory distress [Recovered/Resolved]
  - Respiratory rate increased [Recovered/Resolved]
  - Heart rate increased [Recovered/Resolved]
  - Ear infection [Recovered/Resolved]
  - Respiratory syncytial virus bronchiolitis [Unknown]
  - Bronchiectasis [Unknown]
  - Rhinovirus infection [Recovered/Resolved]

NARRATIVE: CASE EVENT DATE: 20160318
